FAERS Safety Report 20018433 (Version 2)
Quarter: 2021Q4

REPORT INFORMATION
  Report Type: Spontaneous
  Country: US (occurrence: None)
  Receive Date: 20211101
  Receipt Date: 20211118
  Transmission Date: 20220303
  Serious: No
  Sender: FDA-Public Use
  Company Number: 2021A781731

PATIENT
  Sex: Female
  Weight: 57.6 kg

DRUGS (4)
  1. PULMICORT FLEXHALER [Suspect]
     Active Substance: BUDESONIDE
     Indication: Hypersensitivity
     Dosage: 180.0UG UNKNOWN
     Route: 055
     Dates: end: 20210829
  2. PULMICORT FLEXHALER [Suspect]
     Active Substance: BUDESONIDE
     Indication: Upper-airway cough syndrome
     Dosage: 180.0UG UNKNOWN
     Route: 055
     Dates: end: 20210829
  3. PULMICORT FLEXHALER [Suspect]
     Active Substance: BUDESONIDE
     Indication: Asthma
     Dosage: 180.0UG UNKNOWN
     Route: 055
     Dates: end: 20210829
  4. PULMICORT FLEXHALER [Suspect]
     Active Substance: BUDESONIDE
     Indication: Sinusitis
     Dosage: 180.0UG UNKNOWN
     Route: 055
     Dates: end: 20210829

REACTIONS (9)
  - Hypoacusis [Unknown]
  - Feeling abnormal [Unknown]
  - Taste disorder [Unknown]
  - Stress [Unknown]
  - Intentional product misuse [Unknown]
  - Intentional device misuse [Unknown]
  - Product use issue [Unknown]
  - Device leakage [Unknown]
  - Device malfunction [Unknown]
